FAERS Safety Report 24982769 (Version 2)
Quarter: 2025Q1

REPORT INFORMATION
  Report Type: Spontaneous
  Country: JP (occurrence: JP)
  Receive Date: 20250218
  Receipt Date: 20250219
  Transmission Date: 20250409
  Serious: Yes (Other)
  Sender: MERCK SHARP & DOHME LLC
  Company Number: JP-MSD-2408JPN003858J

PATIENT
  Age: 60 Year
  Sex: Male

DRUGS (1)
  1. KEYTRUDA [Suspect]
     Active Substance: PEMBROLIZUMAB
     Indication: Renal neoplasm
     Route: 065

REACTIONS (5)
  - Malignant neoplasm progression [Unknown]
  - Immune-mediated hepatic disorder [Unknown]
  - Amylase increased [Unknown]
  - Immune-mediated dermatitis [Unknown]
  - Anaemia [Unknown]
